FAERS Safety Report 17677951 (Version 2)
Quarter: 2020Q2

REPORT INFORMATION
  Report Type: Report from Study
  Country: FR (occurrence: FR)
  Receive Date: 20200416
  Receipt Date: 20200601
  Transmission Date: 20200714
  Serious: Yes (Hospitalization)
  Sender: FDA-Public Use
  Company Number: FR-REGENERON PHARMACEUTICALS, INC.-2020-30795

PATIENT

DRUGS (14)
  1. JELONET                            /00473501/ [Concomitant]
     Indication: SKIN ULCER
     Dosage: 1 PATCH, AS NECESSARY
     Route: 061
     Dates: start: 20200220, end: 20200408
  2. PANTOPRAZOL                        /01263201/ [Concomitant]
     Active Substance: PANTOPRAZOLE
     Indication: PROPHYLAXIS AGAINST GASTROINTESTINAL ULCER
     Dosage: 20 MG, QD
     Route: 048
     Dates: start: 201811
  3. DOLIPRANE [Concomitant]
     Active Substance: ACETAMINOPHEN
     Indication: PAIN PROPHYLAXIS
     Dosage: 1 G, AS NECESSARY
     Route: 048
     Dates: start: 201811
  4. TAHOR [Concomitant]
     Active Substance: ATORVASTATIN CALCIUM
     Indication: PROPHYLAXIS
     Dosage: 40 MG, QD
     Route: 048
     Dates: start: 201811
  5. LASILIX                            /00032601/ [Concomitant]
     Active Substance: FUROSEMIDE
     Indication: CARDIAC DISORDER
     Dosage: 20 MG, QD
     Route: 048
     Dates: start: 20191224, end: 20200408
  6. RAMIPRIL. [Concomitant]
     Active Substance: RAMIPRIL
     Indication: HYPERTENSION
     Dosage: 2.5 MG, QD
     Route: 048
     Dates: start: 201811, end: 20200427
  7. SMECTA [Concomitant]
     Active Substance: MONTMORILLONITE
     Indication: DIARRHOEA
     Dosage: 3 G, QD
     Route: 048
     Dates: start: 20200220, end: 20200408
  8. VASELINE                           /00473501/ [Concomitant]
     Active Substance: PARAFFIN
     Indication: HYPERKERATOSIS
     Dosage: 1 APPLICATION, QD
     Route: 061
     Dates: start: 20200123, end: 20200408
  9. BEPANTHENE [Concomitant]
     Active Substance: DEXPANTHENOL
     Indication: SKIN FISSURES
     Dosage: 1 APPLICATION, QD
     Route: 061
     Dates: start: 20200123, end: 20200408
  10. BISOPROLOL [Concomitant]
     Active Substance: BISOPROLOL
     Indication: HYPERTENSION
     Dosage: 10 MG, QD
     Route: 048
     Dates: start: 201811
  11. PLAVIX [Concomitant]
     Active Substance: CLOPIDOGREL BISULFATE
     Indication: PROPHYLAXIS
     Dosage: 75 MG, QD
     Route: 048
     Dates: start: 201811, end: 20200408
  12. ASPIRINE [Concomitant]
     Active Substance: ASPIRIN
     Indication: PROPHYLAXIS
     Dosage: 75 MG, QD
     Route: 048
     Dates: start: 201811, end: 20200520
  13. COLISTIMETHATE SODIUM. [Concomitant]
     Active Substance: COLISTIMETHATE SODIUM
     Indication: PULMONARY MASS
     Dosage: 2000000 IU, BID
     Route: 049
     Dates: start: 20191202, end: 20200408
  14. CEMIPLIMAB [Suspect]
     Active Substance: CEMIPLIMAB
     Indication: SQUAMOUS CELL CARCINOMA OF SKIN
     Dosage: 600 MG, Q4W
     Route: 042
     Dates: start: 20190709, end: 20200220

REACTIONS (1)
  - Neuropathy peripheral [Recovered/Resolved]

NARRATIVE: CASE EVENT DATE: 20200409
